FAERS Safety Report 25903366 (Version 1)
Quarter: 2025Q4

REPORT INFORMATION
  Report Type: Spontaneous
  Country: US (occurrence: US)
  Receive Date: 20251009
  Receipt Date: 20251009
  Transmission Date: 20260117
  Serious: No
  Sender: CB FLEET
  Company Number: US-PRESTIGE-202506-US-001821

PATIENT
  Sex: Female

DRUGS (5)
  1. MONISTAT 7 [Suspect]
     Active Substance: MICONAZOLE NITRATE
     Indication: Fungal infection
     Dosage: USED 1 DOSE AT A TIME INTERMITTENTLY OVER 6 MONTHS
     Route: 067
  2. MONISTAT 7 [Suspect]
     Active Substance: MICONAZOLE NITRATE
     Route: 067
  3. MONISTAT 7 [Suspect]
     Active Substance: MICONAZOLE NITRATE
     Route: 067
  4. MONISTAT 7 [Suspect]
     Active Substance: MICONAZOLE NITRATE
     Route: 067
  5. MONISTAT 7 [Suspect]
     Active Substance: MICONAZOLE NITRATE
     Route: 067

REACTIONS (5)
  - Dysuria [Not Recovered/Not Resolved]
  - Vaginal haemorrhage [Not Recovered/Not Resolved]
  - Vulvovaginal discomfort [Not Recovered/Not Resolved]
  - Vaginal discharge [Not Recovered/Not Resolved]
  - Intentional product misuse [None]
